FAERS Safety Report 11006242 (Version 1)
Quarter: 2015Q2

REPORT INFORMATION
  Report Type: Spontaneous
  Country: CA (occurrence: CA)
  Receive Date: 20150409
  Receipt Date: 20150409
  Transmission Date: 20150821
  Serious: Yes (Life-Threatening, Other)
  Sender: FDA-Public Use
  Company Number: 2015SP001038

PATIENT
  Age: 13 Year
  Sex: Female

DRUGS (6)
  1. CELEXA [Concomitant]
     Active Substance: CITALOPRAM HYDROBROMIDE
     Dates: start: 2011
  2. CLARITHROMYCIN. [Suspect]
     Active Substance: CLARITHROMYCIN
  3. ONDANSETRON [Concomitant]
     Active Substance: ONDANSETRON
     Dates: start: 2014
  4. LATUDA [Suspect]
     Active Substance: LURASIDONE HYDROCHLORIDE
     Indication: BIPOLAR I DISORDER
     Route: 048
     Dates: end: 20150402
  5. LATUDA [Suspect]
     Active Substance: LURASIDONE HYDROCHLORIDE
     Indication: BIPOLAR I DISORDER
     Route: 048
  6. LITHIUM. [Concomitant]
     Active Substance: LITHIUM
     Dates: start: 2014

REACTIONS (4)
  - Dystonia [Unknown]
  - Muscular weakness [Unknown]
  - Dyspnoea [Unknown]
  - Facial spasm [Unknown]

NARRATIVE: CASE EVENT DATE: 2015
